FAERS Safety Report 8144868-4 (Version None)
Quarter: 2012Q1

REPORT INFORMATION
  Report Type: 
  Country: None (occurrence: None)
  Receive Date: 20120217
  Receipt Date: 20120213
  Transmission Date: 20120608
  Serious: Yes (Life-Threatening, Hospitalization, Disabling, Other)
  Sender: FDA-Public Use
  Company Number: US-GLAXOSMITHKLINE-A0966223A

PATIENT
  Age: 60 Year
  Sex: Female

DRUGS (8)
  1. CALCIUM [Concomitant]
  2. TRAZODONE HYDROCHLORIDE [Concomitant]
  3. DEPAKOTE [Concomitant]
  4. VITAMIN B COMPLEX CAP [Concomitant]
  5. VITAMIN D [Concomitant]
  6. LAMICTAL XR [Suspect]
     Indication: PARTIAL SEIZURES
     Dosage: 250MG TWICE PER DAY
     Route: 048
  7. UNKNOWN [Concomitant]
  8. CELEXA [Concomitant]

REACTIONS (13)
  - VISUAL IMPAIRMENT [None]
  - ADVERSE EVENT [None]
  - FALL [None]
  - LOSS OF CONSCIOUSNESS [None]
  - TREMOR [None]
  - MUSCULAR WEAKNESS [None]
  - BLOOD GLUCOSE DECREASED [None]
  - VOMITING [None]
  - FATIGUE [None]
  - OVERDOSE [None]
  - DIZZINESS [None]
  - SINUSITIS [None]
  - NAUSEA [None]
